FAERS Safety Report 6180721-3 (Version None)
Quarter: 2009Q2

REPORT INFORMATION
  Report Type: 
  Country: None (occurrence: None)
  Receive Date: 20090506
  Receipt Date: 20090428
  Transmission Date: 20091009
  Serious: Yes (Other)
  Sender: FDA-Public Use
  Company Number: CH-ROCHE-630730

PATIENT
  Age: 79 Year
  Sex: Male
  Weight: 59 kg

DRUGS (4)
  1. CAPECITABINE [Suspect]
     Indication: DRUG USE FOR UNKNOWN INDICATION
     Dosage: THERAPY INTERRUPTED FOR 10 DAYS.
     Route: 048
  2. IRINOTECAN HCL [Concomitant]
  3. OXALIPLATIN [Concomitant]
  4. PANTOZOL [Concomitant]
     Dosage: DRUG NAME: PANTOZOLE

REACTIONS (4)
  - ANOREXIA [None]
  - NEOPLASM PROGRESSION [None]
  - NEUTROPENIA [None]
  - PALMAR-PLANTAR ERYTHRODYSAESTHESIA SYNDROME [None]
